FAERS Safety Report 13119403 (Version 1)
Quarter: 2017Q1

REPORT INFORMATION
  Report Type: Spontaneous
  Country: US (occurrence: US)
  Receive Date: 20170116
  Receipt Date: 20170116
  Transmission Date: 20170428
  Serious: No
  Sender: FDA-Public Use
  Company Number: US-ASTRAZENECA-2016SF15037

PATIENT
  Sex: Female

DRUGS (10)
  1. IBRANCE [Suspect]
     Active Substance: PALBOCICLIB
     Indication: BREAST CANCER FEMALE
     Dosage: 125 MG (21 DAYS ON/ 7 DAYS OFF)
     Route: 048
     Dates: start: 20161005
  2. NORVASC [Concomitant]
     Active Substance: AMLODIPINE BESYLATE
  3. VITAMIN B12 [Concomitant]
     Active Substance: CYANOCOBALAMIN
  4. FASLODEX [Suspect]
     Active Substance: FULVESTRANT
     Route: 030
  5. GABAPENTIN. [Concomitant]
     Active Substance: GABAPENTIN
  6. CALCIFEROL [Concomitant]
     Active Substance: ERGOCALCIFEROL
  7. LISINOPRIL. [Concomitant]
     Active Substance: LISINOPRIL
  8. CALCIUM [Concomitant]
     Active Substance: CALCIUM
  9. PROCRIT [Concomitant]
     Active Substance: ERYTHROPOIETIN
  10. IBRANCE [Suspect]
     Active Substance: PALBOCICLIB
     Indication: BREAST CANCER FEMALE
     Dosage: 125 MG (21 DAYS ON/ 7 DAYS OFF)
     Route: 048
     Dates: start: 20160929

REACTIONS (1)
  - Blood pressure increased [Unknown]
